FAERS Safety Report 10227750 (Version 1)
Quarter: 2014Q2

REPORT INFORMATION
  Report Type: Spontaneous
  Country: US (occurrence: US)
  Receive Date: 20140610
  Receipt Date: 20140610
  Transmission Date: 20141212
  Serious: Yes (Hospitalization)
  Sender: FDA-Public Use
  Company Number: US-PFIZER INC-2014154117

PATIENT
  Age: 60 Year
  Sex: Female
  Weight: 86.17 kg

DRUGS (12)
  1. XELJANZ [Suspect]
     Indication: RHEUMATOID ARTHRITIS
     Dosage: 5 MG, 2X/DAY
     Route: 048
     Dates: start: 20130918, end: 20140429
  2. MELOXICAM [Concomitant]
     Dosage: UNK
  3. LEVOTHYROXINE [Concomitant]
     Dosage: UNK
  4. VIIBRYD [Concomitant]
     Dosage: UNK
  5. VALACYCLOVIR [Concomitant]
     Dosage: UNK
  6. VITAMIN D [Concomitant]
     Dosage: UNK
  7. FLONASE [Concomitant]
     Dosage: UNK
  8. HYDROCODONE [Concomitant]
     Dosage: UNK
  9. XARELTO [Concomitant]
     Dosage: UNK
  10. LISINOPRIL [Concomitant]
     Dosage: UNK
  11. HCTZ [Concomitant]
     Dosage: UNK
  12. VOLTAREN GEL [Concomitant]
     Dosage: UNK

REACTIONS (1)
  - Arthropathy [Unknown]
